FAERS Safety Report 6414968-5 (Version None)
Quarter: 2009Q4

REPORT INFORMATION
  Report Type: 
  Country: None (occurrence: None)
  Receive Date: 20091026
  Receipt Date: 20090224
  Transmission Date: 20100525
  Serious: No
  Sender: FDA-Public Use
  Company Number: US-ABBOTT-09P-163-0559597-00

PATIENT
  Sex: Female
  Weight: 64.922 kg

DRUGS (4)
  1. LUPRON DEPOT [Suspect]
     Indication: ENDOMETRIOSIS
     Dosage: GIVES 3.75 MG
     Dates: start: 20090121, end: 20090219
  2. ALBUTEROL [Concomitant]
     Indication: ASTHMA
  3. NAPROXEN [Concomitant]
     Indication: DRUG USE FOR UNKNOWN INDICATION
  4. INJESTIN [Concomitant]
     Indication: DRUG USE FOR UNKNOWN INDICATION
     Dosage: ADBACK THERAPY
     Dates: start: 20090121

REACTIONS (1)
  - METRORRHAGIA [None]
